FAERS Safety Report 4409520-7 (Version None)
Quarter: 2004Q3

REPORT INFORMATION
  Report Type: 
  Country: None (occurrence: None)
  Receive Date: 20040723
  Receipt Date: 20040709
  Transmission Date: 20050211
  Serious: Yes (Hospitalization)
  Sender: FDA-Public Use
  Company Number: US-JNJFOC-20040703048

PATIENT
  Age: 37 Year
  Sex: Female

DRUGS (6)
  1. REMICADE [Suspect]
     Indication: CROHN'S DISEASE
     Dosage: 400 MG, INTRAVENOUS
     Route: 042
     Dates: start: 20040528
  2. LOMOTIL (DIPHENOXYLATE W/ATROPINE) [Concomitant]
  3. PREDNISONE [Concomitant]
  4. MULTIVITAMIN WITH IRON (MULTIVITAMIN WITH IRON) [Concomitant]
  5. PROBIOTIC (ALL OTHER THERAPEUTIC PRODUCTS) [Concomitant]
  6. ESTRADIOL [Concomitant]

REACTIONS (4)
  - ANAEMIA [None]
  - HYPOTENSION [None]
  - PYELONEPHRITIS [None]
  - SEPSIS [None]
